FAERS Safety Report 9074525 (Version 1)
Quarter: 2013Q1

REPORT INFORMATION
  Report Type: Report from Study
  Country: US (occurrence: US)
  Receive Date: 20130129
  Receipt Date: 20130129
  Transmission Date: 20140127
  Serious: No
  Sender: FDA-Public Use
  Company Number: US-ABBOTT-12P-163-0924856-00

PATIENT
  Age: 42 None
  Sex: Female

DRUGS (9)
  1. HUMIRA 40 MG/0.8 ML PEN [Suspect]
     Indication: CROHN^S DISEASE
     Dosage: LOADING DOSE
     Route: 058
     Dates: start: 20120405
  2. HUMIRA 40 MG/0.8 ML PEN [Suspect]
     Route: 058
  3. MERCAPTOPURINE [Concomitant]
     Indication: CROHN^S DISEASE
     Dosage: DAILY
  4. SUMATRIPTAN [Concomitant]
     Indication: HEADACHE
     Dosage: PRN
  5. CITALOPRAM HBR [Concomitant]
     Indication: TENSION
     Dosage: DAILY
  6. HYDROCHLOROTHIAZIDE [Concomitant]
     Indication: BLOOD PRESSURE
  7. GABAPENTIN [Concomitant]
     Indication: PAIN
     Dosage: TID TID
  8. GABAPENTIN [Concomitant]
     Indication: FIBROMYALGIA
  9. MECLIZINE [Concomitant]
     Indication: DIZZINESS
     Dosage: PRN TID

REACTIONS (11)
  - Dizziness [Unknown]
  - Fatigue [Unknown]
  - Dyspnoea [Not Recovered/Not Resolved]
  - Cough [Not Recovered/Not Resolved]
  - Hypoaesthesia [Not Recovered/Not Resolved]
  - Paraesthesia [Not Recovered/Not Resolved]
  - Chest discomfort [Not Recovered/Not Resolved]
  - Blood pressure increased [Not Recovered/Not Resolved]
  - Nausea [Unknown]
  - Asthenia [Unknown]
  - Palpitations [Unknown]
